FAERS Safety Report 26208941 (Version 1)
Quarter: 2025Q4

REPORT INFORMATION
  Report Type: Spontaneous
  Country: US (occurrence: US)
  Receive Date: 20251229
  Receipt Date: 20251229
  Transmission Date: 20260117
  Serious: Yes (Hospitalization, Other)
  Sender: BRISTOL-MYERS SQUIBB COMPANY
  Company Number: US-BRISTOL-MYERS SQUIBB COMPANY-2025-173480

PATIENT
  Age: 78 Year
  Sex: Male
  Weight: 96.62 kg

DRUGS (1)
  1. REVLIMID [Suspect]
     Active Substance: LENALIDOMIDE
     Indication: Plasma cell myeloma
     Dosage: TAKE 1 CAPSULE DAILY FOR 21 DAYS, THEN 7 DAYS OFF, EVERY 28-DAY CYCLE
     Route: 048

REACTIONS (1)
  - Myocardial infarction [Recovering/Resolving]
